FAERS Safety Report 6059548-9 (Version None)
Quarter: 2009Q1

REPORT INFORMATION
  Report Type: 
  Country: None (occurrence: None)
  Receive Date: 20090127
  Receipt Date: 20090127
  Transmission Date: 20090719
  Serious: Yes (Hospitalization)
  Sender: FDA-Public Use
  Company Number: None

PATIENT
  Age: 84 Year
  Sex: Male
  Weight: 90.7194 kg

DRUGS (1)
  1. GABAPENTIN [Suspect]
     Indication: NEURALGIA
     Dosage: 1 CAPSULE TWICE A DAY PO
     Route: 048
     Dates: start: 20080913, end: 20090112

REACTIONS (4)
  - CARDIAC ENZYMES INCREASED [None]
  - DISORIENTATION [None]
  - RENAL FAILURE ACUTE [None]
  - URINARY RETENTION [None]
